FAERS Safety Report 5874865-0 (Version None)
Quarter: 2008Q3

REPORT INFORMATION
  Report Type: 
  Country: None (occurrence: None)
  Receive Date: 20080904
  Receipt Date: 20080828
  Transmission Date: 20090109
  Serious: Yes (Hospitalization)
  Sender: FDA-Public Use
  Company Number: 2008TJ0214

PATIENT
  Age: 16 Year
  Sex: Male

DRUGS (2)
  1. TWINJECT 0.3 [Suspect]
     Indication: ANAPHYLACTIC REACTION
     Dosage: 0.3 MG, PRN, SUBCUTANEOUS/INTRAMUSCULAR
     Route: 058
  2. INTERMITTENT USE OF ANTIHISTAMINES (UNSPECIFIED) [Concomitant]

REACTIONS (2)
  - DEVICE FAILURE [None]
  - PHARMACEUTICAL PRODUCT COMPLAINT [None]
